FAERS Safety Report 22774419 (Version 5)
Quarter: 2023Q4

REPORT INFORMATION
  Report Type: Report from Study
  Country: JP (occurrence: JP)
  Receive Date: 20230802
  Receipt Date: 20231004
  Transmission Date: 20240109
  Serious: Yes (Hospitalization, Other)
  Sender: FDA-Public Use
  Company Number: JP-TAKEDA-2021TJP043185

PATIENT
  Age: 49 Year
  Sex: Female
  Weight: 65.5 kg

DRUGS (7)
  1. ICATIBANT [Suspect]
     Active Substance: ICATIBANT ACETATE
     Indication: Hereditary angioedema
     Dosage: 30 MILLIGRAM, 1/WEEK
     Route: 058
     Dates: start: 20190101
  2. ICATIBANT [Suspect]
     Active Substance: ICATIBANT ACETATE
     Indication: Hereditary angioedema
     Dosage: 30 MILLIGRAM, 1/WEEK
     Route: 058
     Dates: start: 20190101
  3. ICATIBANT [Suspect]
     Active Substance: ICATIBANT ACETATE
     Dosage: 30 MILLIGRAM
     Route: 058
  4. ICATIBANT [Suspect]
     Active Substance: ICATIBANT ACETATE
     Dosage: 30 MILLIGRAM
     Route: 058
  5. TRANSAMIN [Concomitant]
     Active Substance: TRANEXAMIC ACID
     Indication: Hereditary angioedema
     Dosage: UNK UNK, PRN
     Route: 048
  6. BERINERT P [Concomitant]
     Active Substance: HUMAN C1-ESTERASE INHIBITOR
     Dosage: UNK
     Route: 065
  7. BERINERT P [Concomitant]
     Active Substance: HUMAN C1-ESTERASE INHIBITOR
     Dosage: UNK
     Route: 065
     Dates: start: 20230729, end: 20230729

REACTIONS (2)
  - Coronavirus infection [Recovered/Resolved]
  - Injection site pain [Not Recovered/Not Resolved]

NARRATIVE: CASE EVENT DATE: 20230120
